FAERS Safety Report 8485928-8 (Version None)
Quarter: 2012Q3

REPORT INFORMATION
  Report Type: 
  Country: None (occurrence: None)
  Receive Date: 20120703
  Receipt Date: 20120620
  Transmission Date: 20120928
  Serious: No
  Sender: FDA-Public Use
  Company Number: US-ASTRAZENECA-2012SE41605

PATIENT
  Age: 66 Year
  Sex: Female
  Weight: 99.8 kg

DRUGS (10)
  1. NEXIUM [Suspect]
     Indication: GASTROOESOPHAGEAL REFLUX DISEASE
     Route: 048
  2. NEXIUM [Suspect]
     Route: 048
  3. ATIVAN [Concomitant]
     Indication: STRESS
  4. BACTRIM [Concomitant]
     Indication: URINARY TRACT INFECTION
  5. ZOFRAN [Concomitant]
     Indication: HYPERCHLORHYDRIA
  6. ATIVAN [Concomitant]
     Indication: PANIC ATTACK
  7. INDERAL [Concomitant]
     Indication: BLOOD PRESSURE ABNORMAL
  8. NEXIUM [Suspect]
     Route: 048
  9. NEXIUM [Suspect]
     Route: 048
  10. ENALAPRIL MALEATE [Concomitant]
     Indication: ARRHYTHMIA

REACTIONS (6)
  - HIATUS HERNIA [None]
  - DRUG EFFECT DECREASED [None]
  - OFF LABEL USE [None]
  - URINARY TRACT INFECTION [None]
  - VOMITING [None]
  - COUGH [None]
